FAERS Safety Report 6753162-5 (Version None)
Quarter: 2010Q2

REPORT INFORMATION
  Report Type: 
  Country: None (occurrence: None)
  Receive Date: 20100601
  Receipt Date: 20100514
  Transmission Date: 20101027
  Serious: Yes (Death)
  Sender: FDA-Public Use
  Company Number: AE 2010-085

PATIENT
  Age: 68 Year
  Sex: Male

DRUGS (16)
  1. FAZACLO ODT [Suspect]
     Indication: SCHIZOAFFECTIVE DISORDER
     Dosage: 162.5 MG DAILY PO
     Route: 048
     Dates: start: 20061004, end: 20100514
  2. ABILIFY [Concomitant]
  3. LEVOTHYROXINE SODIUM [Concomitant]
  4. OMEPRAZOLE [Concomitant]
  5. MIRALAX [Concomitant]
  6. MILK OF MAGNESIUM [Concomitant]
  7. CRANBERRY CAPSULES [Concomitant]
  8. DEEP NASAL SPRAY [Concomitant]
  9. FERROUS SULFATE TAB [Concomitant]
  10. CALCIUM CARBONATE [Concomitant]
  11. VITAMIN D [Concomitant]
  12. FUROSEMIDE [Concomitant]
  13. LEVAQUIN [Concomitant]
  14. BISAC-EVAC [Concomitant]
  15. SODIUM PHOSPHATES [Concomitant]
  16. TYLENOL [Concomitant]

REACTIONS (1)
  - CARDIO-RESPIRATORY ARREST [None]
